FAERS Safety Report 16244311 (Version 10)
Quarter: 2020Q4

REPORT INFORMATION
  Report Type: Spontaneous
  Country: ES (occurrence: ES)
  Receive Date: 20190426
  Receipt Date: 20201016
  Transmission Date: 20210113
  Serious: Yes (Other)
  Sender: FDA-Public Use
  Company Number: ES-ELI_LILLY_AND_COMPANY-ES201902001100

PATIENT
  Age: 59 Year
  Sex: Female

DRUGS (8)
  1. DULOXETINE HYDROCHLORIDE 60MG [Suspect]
     Active Substance: DULOXETINE HYDROCHLORIDE
     Indication: BACK PAIN
     Dosage: 30 MG, UNKNOWN
     Route: 048
  2. CELEBREX [Suspect]
     Active Substance: CELECOXIB
     Indication: BACK PAIN
     Dosage: 200 MG, UNKNOWN
     Route: 065
  3. PAZITAL [Suspect]
     Active Substance: ACETAMINOPHEN\TRAMADOL HYDROCHLORIDE
     Indication: CERVICOBRACHIAL SYNDROME
     Dosage: 37.5MG/325MG, UNKNOWN
     Route: 065
  4. PAZITAL [Suspect]
     Active Substance: ACETAMINOPHEN\TRAMADOL HYDROCHLORIDE
     Indication: BACK PAIN
  5. DULOXETINE HYDROCHLORIDE 60MG [Suspect]
     Active Substance: DULOXETINE HYDROCHLORIDE
     Indication: NEURALGIA
     Dosage: 60 MG, UNKNOWN
     Route: 065
  6. CELEBREX [Suspect]
     Active Substance: CELECOXIB
     Indication: CERVICOBRACHIAL SYNDROME
  7. ATORVASTATIN [Suspect]
     Active Substance: ATORVASTATIN
     Indication: DYSLIPIDAEMIA
     Dosage: UNK UNK, UNKNOWN
     Route: 065
  8. DULOXETINE HYDROCHLORIDE 60MG [Suspect]
     Active Substance: DULOXETINE HYDROCHLORIDE
     Indication: CERVICOBRACHIAL SYNDROME
     Dosage: 60 MG, UNKNOWN
     Route: 048

REACTIONS (2)
  - Laryngeal oedema [Recovered/Resolved]
  - Dysphonia [Recovered/Resolved]
